FAERS Safety Report 11753244 (Version 1)
Quarter: 2015Q4

REPORT INFORMATION
  Report Type: Spontaneous
  Country: US (occurrence: US)
  Receive Date: 20151119
  Receipt Date: 20151119
  Transmission Date: 20160304
  Serious: No
  Sender: FDA-Public Use
  Company Number: US-ETHYPHARM USA CORP-EY-BP-US-2015-270

PATIENT

DRUGS (1)
  1. SUBUTEX [Suspect]
     Active Substance: BUPRENORPHINE HYDROCHLORIDE
     Indication: PRODUCT USED FOR UNKNOWN INDICATION

REACTIONS (9)
  - Hyposmia [None]
  - Malaise [None]
  - Nasal congestion [None]
  - Nasal dryness [None]
  - Nasopharyngitis [None]
  - Increased viscosity of upper respiratory secretion [None]
  - Intentional product use issue [None]
  - Constipation [None]
  - Intentional product misuse [None]
